FAERS Safety Report 4010320 (Version 3)
Quarter: 2018Q2

REPORT INFORMATION
  Report Type: Spontaneous
  Country: FR (occurrence: FR)
  Receive Date: 20031009
  Receipt Date: 20180424
  Transmission Date: 20180711
  Serious: Yes (Other)
  Sender: FDA-Public Use
  Company Number: PHBS2003FR10716

PATIENT
  Age: 34 Year
  Sex: Male

DRUGS (1)
  1. GLEEVEC [Suspect]
     Active Substance: IMATINIB MESYLATE
     Indication: CHRONIC MYELOID LEUKAEMIA
     Dosage: 400 MG, QD
     Route: 048
     Dates: start: 200108

REACTIONS (3)
  - Cytogenetic abnormality [Not Recovered/Not Resolved]
  - Pancytopenia [Not Recovered/Not Resolved]
  - Asthenia [Not Recovered/Not Resolved]
